FAERS Safety Report 6865810-X (Version None)
Quarter: 2010Q3

REPORT INFORMATION
  Report Type: 
  Country: None (occurrence: None)
  Receive Date: 20100721
  Receipt Date: 20100629
  Transmission Date: 20110219
  Serious: No
  Sender: FDA-Public Use
  Company Number: US-PFIZER INC-2008022014

PATIENT
  Sex: Female
  Weight: 75.283 kg

DRUGS (20)
  1. CHANTIX [Suspect]
     Indication: SMOKING CESSATION THERAPY
     Dosage: 0.5 MG, DAILY
     Route: 048
     Dates: start: 20070101, end: 20100101
  2. CELEBREX [Suspect]
     Indication: ARTHRITIS
     Dosage: UNK
     Route: 048
  3. GLIPIZIDE [Suspect]
     Indication: DIABETES MELLITUS
     Dosage: 5 MG, 3X/DAY
     Route: 048
     Dates: start: 20090101
  4. NOVOLOG [Suspect]
     Indication: DIABETES MELLITUS
     Dosage: UNK
     Dates: end: 20090101
  5. ACETYLSALICYLIC ACID [Concomitant]
     Dosage: 81 MG/DAY
  6. CELEXA [Concomitant]
     Dosage: 20 MG/DAY
     Route: 048
  7. VITACAL [Concomitant]
     Dosage: 500 MG, 2X/DAY
  8. LASIX [Concomitant]
     Dosage: UNK
  9. ATARAX [Concomitant]
     Dosage: 10 MG, 2X/DAY
  10. LOPERAMIDE HYDROCHLORIDE [Concomitant]
     Dosage: UNK
     Route: 048
  11. PRILOSEC [Concomitant]
     Dosage: 20 MG/DAY
  12. XANAX [Concomitant]
     Dosage: 1 MG, 2X/DAY
  13. NEURONTIN [Concomitant]
     Indication: DIABETIC NEUROPATHY
     Dosage: 600 MG, 2X/DAY
     Route: 048
  14. VITAMIN B6 [Concomitant]
     Indication: DIABETIC NEUROPATHY
     Dosage: 100 MG/DAY
  15. NITROGLYCERIN [Concomitant]
     Dosage: 2.5 MG, 2X/DAY
     Route: 048
  16. VITAMIN D [Concomitant]
     Dosage: 50000 UNITS, WEEKLY
     Route: 048
  17. LANTUS [Concomitant]
     Indication: DIABETES MELLITUS
     Dosage: 25 UNITS, 2X/DAY
  18. DITROPAN [Concomitant]
     Dosage: 5 MG, 2X/DAY
     Route: 048
  19. VITAMIN C [Concomitant]
     Dosage: 1000 MG, 2X/DAY
  20. LOPRESSOR [Concomitant]
     Indication: HYPERTENSION
     Dosage: UNK

REACTIONS (15)
  - ABDOMINAL DISCOMFORT [None]
  - BLOOD GLUCOSE DECREASED [None]
  - BLOOD IRON DECREASED [None]
  - DECREASED APPETITE [None]
  - DRUG INEFFECTIVE [None]
  - DRY SKIN [None]
  - FEELING OF RELAXATION [None]
  - HYPERSENSITIVITY [None]
  - HYPERTENSION [None]
  - MUSCLE SPASMS [None]
  - NAUSEA [None]
  - SOMNOLENCE [None]
  - TOBACCO USER [None]
  - TREMOR [None]
  - VOMITING [None]
